FAERS Safety Report 19512183 (Version 3)
Quarter: 2022Q3

REPORT INFORMATION
  Report Type: Report from Study
  Country: CA (occurrence: CA)
  Receive Date: 20210709
  Receipt Date: 20220916
  Transmission Date: 20221027
  Serious: Yes (Hospitalization, Other)
  Sender: FDA-Public Use
  Company Number: CA-PFIZER INC-2021794908

PATIENT
  Age: 58 Year
  Sex: Male

DRUGS (5)
  1. LEVOFLOXACIN [Suspect]
     Active Substance: LEVOFLOXACIN
     Dosage: UNK
     Route: 065
  2. SANDOSTATIN [Suspect]
     Active Substance: OCTREOTIDE ACETATE
     Indication: Neuroendocrine tumour
     Dosage: TOTAL
     Route: 058
  3. SANDOSTATIN [Suspect]
     Active Substance: OCTREOTIDE ACETATE
     Dosage: 30 MG, MONTHLY
     Route: 030
  4. SANDOSTATIN LAR DEPOT [Suspect]
     Active Substance: OCTREOTIDE ACETATE
     Indication: Neuroendocrine tumour
     Dosage: 30 MG, MONTHLY
     Route: 030
  5. BISOPROLOL [Concomitant]
     Active Substance: BISOPROLOL
     Dosage: 2.5 MG, 1X/DAY
     Route: 065

REACTIONS (18)
  - Back pain [Recovered/Resolved]
  - Blood pressure increased [Recovered/Resolved]
  - Bone pain [Recovered/Resolved]
  - Chromaturia [Recovered/Resolved]
  - Depressed mood [Recovered/Resolved]
  - Drug hypersensitivity [Recovered/Resolved]
  - Drug ineffective [Recovered/Resolved]
  - Drug intolerance [Recovered/Resolved]
  - Feeding disorder [Recovered/Resolved]
  - Hernia [Recovered/Resolved]
  - Hiccups [Recovered/Resolved]
  - Visual impairment [Recovered/Resolved]
  - Vomiting [Recovered/Resolved]
  - Cardiac disorder [Recovered/Resolved]
  - Decreased appetite [Recovered/Resolved]
  - Fatigue [Recovered/Resolved]
  - Inguinal hernia [Recovered/Resolved]
  - Product dose omission issue [Recovered/Resolved]
